FAERS Safety Report 23295172 (Version 2)
Quarter: 2024Q1

REPORT INFORMATION
  Report Type: Spontaneous
  Country: FR (occurrence: FR)
  Receive Date: 20231213
  Receipt Date: 20240102
  Transmission Date: 20240409
  Serious: Yes (Life-Threatening, Hospitalization, Other)
  Sender: FDA-Public Use
  Company Number: None

PATIENT

DRUGS (11)
  1. IBUPROFEN [Suspect]
     Active Substance: IBUPROFEN
     Indication: Pain
     Dosage: UNK
     Dates: start: 20231118, end: 20231120
  2. ACETAMINOPHEN [Suspect]
     Active Substance: ACETAMINOPHEN
     Indication: Pain
     Dosage: UNK
     Route: 048
     Dates: start: 20231102, end: 20231123
  3. GENTAMICIN SULFATE [Suspect]
     Active Substance: GENTAMICIN SULFATE
     Indication: Hyperthermia
     Dosage: 5 MG/KG, (1 TOTAL)
     Route: 042
     Dates: start: 20231120, end: 20231120
  4. CLONIDINE [Suspect]
     Active Substance: CLONIDINE
     Indication: Dystonia
     Dosage: 1 ?G/KG, QD
     Route: 048
     Dates: start: 20231118, end: 20231120
  5. CEFTRIAXONE SODIUM [Suspect]
     Active Substance: CEFTRIAXONE SODIUM
     Indication: Hyperthermia
     Dosage: 100 MG/KG, (1 TOTAL)
     Route: 042
     Dates: start: 20231120, end: 20231120
  6. CLONIDINE [Suspect]
     Active Substance: CLONIDINE
     Indication: Dystonia
     Dosage: 10 ?G/KG, QD
     Route: 042
     Dates: start: 20231117, end: 20231117
  7. RIVOTRIL [Suspect]
     Active Substance: CLONAZEPAM
     Indication: Dystonia
     Dosage: 1 GTT, QD
     Route: 048
     Dates: end: 20231113
  8. RIVOTRIL [Suspect]
     Active Substance: CLONAZEPAM
     Dosage: 1 GTT, BID
     Route: 048
     Dates: start: 20231114, end: 20231116
  9. RIVOTRIL [Suspect]
     Active Substance: CLONAZEPAM
     Dosage: 1 GTT, TID
     Route: 048
     Dates: start: 20231118, end: 20231120
  10. VANCOMYCIN HYDROCHLORIDE [Suspect]
     Active Substance: VANCOMYCIN HYDROCHLORIDE
     Indication: Hyperthermia
     Dosage: 40 MG/KG, (1 TOTAL)
     Route: 042
     Dates: start: 20231120, end: 20231120
  11. AMITRIPTYLINE HYDROCHLORIDE [Suspect]
     Active Substance: AMITRIPTYLINE HYDROCHLORIDE
     Indication: Dystonia
     Dosage: 2 GTT, TID
     Route: 048
     Dates: start: 20231120

REACTIONS (7)
  - Acute kidney injury [Recovered/Resolved]
  - Hepatocellular injury [Recovering/Resolving]
  - Hyperthermia [Recovered/Resolved]
  - Incorrect dose administered [Recovered/Resolved]
  - Accidental overdose [Recovered/Resolved]
  - Bradycardia [Recovered/Resolved]
  - Hypotension [Recovered/Resolved]

NARRATIVE: CASE EVENT DATE: 20231117
